FAERS Safety Report 25986091 (Version 1)
Quarter: 2025Q4

REPORT INFORMATION
  Report Type: Spontaneous
  Country: EU (occurrence: EU)
  Receive Date: 20251101
  Receipt Date: 20251101
  Transmission Date: 20260117
  Serious: Yes (Life-Threatening, Disabling)
  Sender: ACCORD
  Company Number: EU-MLMSERVICE-20251013-PI674371-00108-1

PATIENT
  Age: 49 Year
  Sex: Male

DRUGS (3)
  1. CLOZAPINE [Suspect]
     Active Substance: CLOZAPINE
     Indication: Schizophrenia
     Dates: start: 2020, end: 2023
  2. SIMVASTATIN [Concomitant]
     Active Substance: SIMVASTATIN
     Indication: Lipid metabolism disorder
     Dates: start: 2010
  3. METHYLPHENIDATE [Concomitant]
     Active Substance: METHYLPHENIDATE
     Dosage: REINITIATION
     Dates: start: 2017

REACTIONS (3)
  - Mitral valve incompetence [Recovering/Resolving]
  - Dilated cardiomyopathy [Recovering/Resolving]
  - Cardiac failure [Recovering/Resolving]

NARRATIVE: CASE EVENT DATE: 20230101
